FAERS Safety Report 13881670 (Version 2)
Quarter: 2017Q3

REPORT INFORMATION
  Report Type: Report from Study
  Country: FR (occurrence: FR)
  Receive Date: 20170818
  Receipt Date: 20170828
  Transmission Date: 20171127
  Serious: Yes (Hospitalization)
  Sender: FDA-Public Use
  Company Number: FR-ROCHE-1978160

PATIENT
  Age: 66 Year
  Sex: Female

DRUGS (10)
  1. ATEZOLIZUMAB. [Suspect]
     Active Substance: ATEZOLIZUMAB
     Dosage: REINTRODUCED
     Route: 042
     Dates: start: 20170530
  2. RAMIPRIL. [Concomitant]
     Active Substance: RAMIPRIL
     Route: 065
  3. PRAVASTATIN. [Concomitant]
     Active Substance: PRAVASTATIN
     Route: 065
  4. ATENOLOL. [Concomitant]
     Active Substance: ATENOLOL
     Route: 065
  5. CARBOPLATIN. [Suspect]
     Active Substance: CARBOPLATIN
     Indication: RECURRENT CANCER
     Dosage: LAST DOSE BEFORE THE EVENT: 25/APR/2017?AREA UNDER CURVE (AUC) =5, ON DAY 1 OF EVERY CYCLE
     Route: 042
     Dates: start: 20170425
  6. BEVACIZUMAB. [Suspect]
     Active Substance: BEVACIZUMAB
     Dosage: REINTRODUCED
     Route: 042
     Dates: start: 20170530
  7. ATEZOLIZUMAB. [Suspect]
     Active Substance: ATEZOLIZUMAB
     Indication: RECURRENT CANCER
     Dosage: ON DAY 1 AND 15 OF EVERY CYCLE. 800 MG ON DAY 1 AND 15 X 6 CYCLES FOLLOWED BY 1200 MG ON DAY 1 EVERY
     Route: 042
     Dates: start: 20170425, end: 20170425
  8. PEGYLATED LIPOSOMAL DOXORUBICIN [Suspect]
     Active Substance: DOXORUBICIN
     Indication: RECURRENT CANCER
     Dosage: CONCENTRATE FOR SOLUTION FOR INFUSION?LAST DOSE BEFORE THE EVENT: 25/APR/2017?ON DAY 1 OF EVERY CYCL
     Route: 042
     Dates: start: 20170425
  9. BEVACIZUMAB. [Suspect]
     Active Substance: BEVACIZUMAB
     Indication: RECURRENT CANCER
     Dosage: LAST DOSE BEFORE THE EVENT: 25/APR/2017?ON DAY 1 AND 15 OF EVERY CYCLE
     Route: 042
     Dates: start: 20170425, end: 20170425
  10. PANTOPRAZOL [Concomitant]
     Active Substance: PANTOPRAZOLE SODIUM
     Route: 065

REACTIONS (2)
  - Pyrexia [Recovered/Resolved]
  - Paraneoplastic syndrome [Recovered/Resolved]

NARRATIVE: CASE EVENT DATE: 20170509
